FAERS Safety Report 9984676 (Version 1)
Quarter: 2014Q1

REPORT INFORMATION
  Report Type: Spontaneous
  Country: US (occurrence: US)
  Receive Date: 20140307
  Receipt Date: 20140307
  Transmission Date: 20141002
  Serious: No
  Sender: FDA-Public Use
  Company Number: US-GLAXOSMITHKLINE-A1058688A

PATIENT
  Age: 69 Year
  Sex: Male

DRUGS (3)
  1. BREO ELLIPTA [Suspect]
     Indication: LUNG DISORDER
     Dosage: 1PUFF TWICE PER DAY
     Route: 055
     Dates: start: 20140121
  2. BLOOD PRESSURE MEDICATION [Concomitant]
  3. LOVASTATIN [Concomitant]

REACTIONS (5)
  - Incorrect dose administered [Unknown]
  - Arthralgia [Recovering/Resolving]
  - Arthralgia [Recovering/Resolving]
  - Musculoskeletal pain [Recovering/Resolving]
  - Gait disturbance [Recovering/Resolving]
